FAERS Safety Report 14371569 (Version 1)
Quarter: 2018Q1

REPORT INFORMATION
  Report Type: Spontaneous
  Country: PT (occurrence: PT)
  Receive Date: 20180110
  Receipt Date: 20180110
  Transmission Date: 20180509
  Serious: Yes (Death, Other)
  Sender: FDA-Public Use
  Company Number: PT-MYLANLABS-2017M1079464

PATIENT
  Age: 46 Year
  Sex: Female

DRUGS (2)
  1. PACLITAXEL. [Suspect]
     Active Substance: PACLITAXEL
     Indication: HEPATIC CANCER METASTATIC
     Dosage: 175 MG/M2, UNK
  2. PACLITAXEL. [Suspect]
     Active Substance: PACLITAXEL
     Indication: HAEMANGIOMA OF LIVER

REACTIONS (6)
  - Anaemia [Unknown]
  - Malignant neoplasm progression [Fatal]
  - Neutropenia [Unknown]
  - Product use in unapproved indication [Unknown]
  - Alopecia [Unknown]
  - Neuropathy peripheral [Unknown]
